FAERS Safety Report 7902144-6 (Version None)
Quarter: 2011Q4

REPORT INFORMATION
  Report Type: 
  Country: None (occurrence: None)
  Receive Date: 20111108
  Receipt Date: 20111029
  Transmission Date: 20120403
  Serious: Yes (Other)
  Sender: FDA-Public Use
  Company Number: AU-BAYER-2011-105129

PATIENT
  Age: 20 Year
  Sex: Female

DRUGS (1)
  1. CLOTRIMAZOLE [Suspect]
     Indication: CANDIDIASIS
     Dosage: UNK
     Dates: start: 20111026

REACTIONS (2)
  - VAGINAL HAEMORRHAGE [None]
  - VULVOVAGINAL BURNING SENSATION [None]
